FAERS Safety Report 26145739 (Version 1)
Quarter: 2025Q4

REPORT INFORMATION
  Report Type: Spontaneous
  Country: US (occurrence: None)
  Receive Date: 20251210
  Receipt Date: 20251210
  Transmission Date: 20260117
  Serious: No
  Sender: FDA-CTU
  Company Number: None

PATIENT
  Age: 27 Year
  Sex: Male
  Weight: 96.75 kg

DRUGS (12)
  1. FLUTICASONE PROPIONATE AND SALMETEROL [Suspect]
     Active Substance: FLUTICASONE PROPIONATE\SALMETEROL XINAFOATE
     Indication: Asthma
     Dosage: OTHER QUANTITY : 60 INHALATION(S);?FREQUENCY : TWICE A DAY;
     Route: 055
     Dates: start: 20251204, end: 20251208
  2. AMITRIPTYLINE [Suspect]
     Active Substance: AMITRIPTYLINE
  3. AMITRIPTYLINE [Concomitant]
     Active Substance: AMITRIPTYLINE
  4. DICYCLOMINE [Concomitant]
     Active Substance: DICYCLOMINE HYDROCHLORIDE
  5. ATORVASTATIN [Concomitant]
     Active Substance: ATORVASTATIN
  6. ADDERALL XR [Concomitant]
     Active Substance: AMPHETAMINE ASPARTATE\AMPHETAMINE SULFATE\DEXTROAMPHETAMINE SACCHARATE\DEXTROAMPHETAMINE SULFATE
  7. ALBUTEROL [Concomitant]
     Active Substance: ALBUTEROL
  8. FISH OIL\OMEGA-3 FATTY ACIDS [Concomitant]
     Active Substance: FISH OIL\OMEGA-3 FATTY ACIDS
  9. MELATONIN [Concomitant]
     Active Substance: MELATONIN
  10. bitamin d3 [Concomitant]
  11. VITAMIN B12 [Concomitant]
     Active Substance: CYANOCOBALAMIN
  12. zyrtex [Concomitant]

REACTIONS (6)
  - Headache [None]
  - Aura [None]
  - Oropharyngeal pain [None]
  - Throat irritation [None]
  - Drug interaction [None]
  - Therapy cessation [None]

NARRATIVE: CASE EVENT DATE: 20251207
